FAERS Safety Report 14817017 (Version 2)
Quarter: 2018Q2

REPORT INFORMATION
  Report Type: Spontaneous
  Country: GB (occurrence: AT)
  Receive Date: 20180426
  Receipt Date: 20180620
  Transmission Date: 20180711
  Serious: Yes (Other)
  Sender: FDA-Public Use
  Company Number: AT-FRESENIUS KABI-FK201805002

PATIENT
  Sex: Female

DRUGS (15)
  1. LEUCOVORIN CALCIUM (MANUFACTURER UNKNOWN) [Suspect]
     Active Substance: LEUCOVORIN CALCIUM
     Indication: COLON CANCER METASTATIC
     Dosage: UNKNOWN
     Route: 065
     Dates: start: 201605, end: 201612
  2. AVASTIN [Suspect]
     Active Substance: BEVACIZUMAB
     Indication: COLON CANCER METASTATIC
     Route: 065
     Dates: start: 201705
  3. OXALIPLATIN 5MG/ML CONCENTRATE FOR SOLUTION FOR INFUSION [Suspect]
     Active Substance: OXALIPLATIN
     Indication: COLON CANCER METASTATIC
     Dosage: UNKNOWN
     Route: 065
     Dates: start: 201705
  4. IRINOTECAN ACCORD [Suspect]
     Active Substance: IRINOTECAN
     Indication: COLON CANCER METASTATIC
     Dosage: UNKNOWN
     Route: 065
     Dates: start: 201605, end: 201612
  5. CEOLAT [Concomitant]
     Indication: ANTIEMETIC SUPPORTIVE CARE
  6. LONQUEX [Concomitant]
     Active Substance: LIPEGFILGRASTIM
     Indication: COLONY STIMULATING FACTOR THERAPY
     Route: 058
  7. CAPECITABINE ACCORD [Suspect]
     Active Substance: CAPECITABINE
     Indication: COLON CANCER METASTATIC
     Dosage: UNKNOWN
     Route: 065
     Dates: start: 201705
  8. FORTECORTIN [Concomitant]
     Active Substance: DEXAMETHASONE
     Indication: ANTIEMETIC SUPPORTIVE CARE
  9. ATROPIN [Concomitant]
     Active Substance: ATROPINE
     Indication: PRODUCT USED FOR UNKNOWN INDICATION
     Route: 058
  10. ONDANSAN [Concomitant]
     Indication: ANTIEMETIC SUPPORTIVE CARE
     Route: 042
  11. ACCOFIL [Concomitant]
     Active Substance: FILGRASTIM
     Indication: COLONY STIMULATING FACTOR THERAPY
  12. 5- FLUOROURACIL EBEWE [Suspect]
     Active Substance: FLUOROURACIL
     Indication: COLON CANCER METASTATIC
     Route: 065
     Dates: start: 201605, end: 201612
  13. CETUXIMAB. [Suspect]
     Active Substance: CETUXIMAB
     Indication: COLON CANCER METASTATIC
     Route: 065
     Dates: start: 201605, end: 201612
  14. CALCIUM GLUCONATE. [Suspect]
     Active Substance: CALCIUM GLUCONATE
     Indication: COLON CANCER METASTATIC
     Route: 065
  15. PASPERTIN [Concomitant]
     Indication: ANTIEMETIC SUPPORTIVE CARE

REACTIONS (2)
  - Malignant neoplasm progression [Unknown]
  - Disease progression [Unknown]

NARRATIVE: CASE EVENT DATE: 201704
